FAERS Safety Report 5386241-8 (Version None)
Quarter: 2007Q3

REPORT INFORMATION
  Report Type: 
  Country: None (occurrence: None)
  Receive Date: 20070713
  Receipt Date: 20070705
  Transmission Date: 20080115
  Serious: Yes (Hospitalization, Other)
  Sender: FDA-Public Use
  Company Number: PHFR2007GB02074

PATIENT
  Age: 9 Year
  Sex: Female
  Weight: 38.2 kg

DRUGS (1)
  1. TEGRETOL [Suspect]
     Indication: ABNORMAL BEHAVIOUR
     Dosage: 200 MG, BID
     Route: 048
     Dates: start: 20070501, end: 20070601

REACTIONS (2)
  - PHARYNGITIS [None]
  - RASH [None]
